FAERS Safety Report 21250594 (Version 2)
Quarter: 2023Q2

REPORT INFORMATION
  Report Type: Report from Study
  Country: DE (occurrence: DE)
  Receive Date: 20220824
  Receipt Date: 20230626
  Transmission Date: 20230722
  Serious: Yes (Hospitalization)
  Sender: FDA-Public Use
  Company Number: DE-ABBVIE-22K-062-4513284-00

PATIENT
  Age: 56 Year
  Sex: Male
  Weight: 95 kg

DRUGS (1)
  1. SKYRIZI [Suspect]
     Active Substance: RISANKIZUMAB-RZAA
     Indication: Psoriasis
     Route: 058
     Dates: start: 20200831

REACTIONS (5)
  - Dupuytren^s contracture [Recovered/Resolved]
  - Wound secretion [Recovered/Resolved]
  - Procedural pain [Unknown]
  - Post procedural swelling [Recovered/Resolved]
  - Bloody discharge [Unknown]

NARRATIVE: CASE EVENT DATE: 20220101
